FAERS Safety Report 4616475-9 (Version None)
Quarter: 2005Q1

REPORT INFORMATION
  Report Type: 
  Country: None (occurrence: None)
  Receive Date: 20050318
  Receipt Date: 20050307
  Transmission Date: 20050727
  Serious: Yes (Death, Hospitalization, Disabling, Other)
  Sender: FDA-Public Use
  Company Number: 2004005884

PATIENT
  Age: 55 Year
  Sex: Female

DRUGS (16)
  1. DILANTIN [Suspect]
     Indication: CONVULSION
     Dosage: SEE IMAGE
     Route: 042
     Dates: start: 20011229, end: 20020108
  2. DILANTIN [Suspect]
     Indication: CONVULSION
     Dosage: SEE IMAGE
     Route: 042
     Dates: start: 20020108, end: 20020117
  3. DILANTIN [Suspect]
     Indication: CONVULSION
     Dosage: SEE IMAGE
     Route: 042
     Dates: start: 20011227
  4. DILANTIN [Suspect]
     Indication: CONVULSION
     Dosage: SEE IMAGE
     Route: 042
     Dates: start: 20020117
  5. QUINAPRIL HCL [Suspect]
     Indication: HYPERTENSION
     Dosage: 20 MG (BID), ORAL
     Route: 048
     Dates: start: 20011231, end: 20020128
  6. CEREBYX [Suspect]
     Indication: CONVULSION
     Dates: start: 20020202
  7. CLONIDINE [Concomitant]
  8. IBUPROFEN [Concomitant]
  9. LORAZEPAM [Concomitant]
  10. NIFEDIPINE [Concomitant]
  11. METOPROLOL TARTRATE (METOPROLOL TARTERATE) [Concomitant]
  12. FAMOTIDINE [Concomitant]
  13. GABAPENTIN [Concomitant]
  14. PREDNISONE [Concomitant]
  15. CLOTRIMAZOLE (CLOTRIMAZOLE) [Concomitant]
  16. NYSTATIN [Concomitant]

REACTIONS (68)
  - AGITATION [None]
  - AMMONIA INCREASED [None]
  - ANGIONEUROTIC OEDEMA [None]
  - ANXIETY [None]
  - AORTIC ATHEROSCLEROSIS [None]
  - APHASIA [None]
  - ATHEROSCLEROSIS [None]
  - BIOPSY SKIN ABNORMAL [None]
  - BLOOD GLUCOSE INCREASED [None]
  - CANDIDIASIS [None]
  - CARDIAC ARREST [None]
  - CARDIOMEGALY [None]
  - CELLULITIS [None]
  - CHRONIC OBSTRUCTIVE AIRWAYS DISEASE EXACERBATED [None]
  - COAGULOPATHY [None]
  - COGNITIVE DISORDER [None]
  - CONVULSION [None]
  - CORONARY ARTERY STENOSIS [None]
  - CULTURE WOUND POSITIVE [None]
  - DEPRESSION [None]
  - DERMATITIS EXFOLIATIVE [None]
  - DERMATITIS EXFOLIATIVE GENERALISED [None]
  - DIALYSIS [None]
  - DIPLOPIA [None]
  - DISSEMINATED INTRAVASCULAR COAGULATION [None]
  - DRUG ERUPTION [None]
  - DRUG HYPERSENSITIVITY [None]
  - DRUG LEVEL ABOVE THERAPEUTIC [None]
  - EFFUSION [None]
  - EMPHYSEMA [None]
  - ENCEPHALOPATHY [None]
  - FACE OEDEMA [None]
  - FALL [None]
  - HAEMOLYTIC ANAEMIA [None]
  - HEPATIC FAILURE [None]
  - HEPATIC NECROSIS [None]
  - HEPATORENAL SYNDROME [None]
  - HYPERTENSION [None]
  - HYPERTENSIVE HEART DISEASE [None]
  - HYPOTENSION [None]
  - INJECTION SITE INFECTION [None]
  - INJECTION SITE PAIN [None]
  - IRON DEFICIENCY ANAEMIA [None]
  - LACERATION [None]
  - LEUKOPENIA [None]
  - LOBAR PNEUMONIA [None]
  - LYMPHOPENIA [None]
  - MEMORY IMPAIRMENT [None]
  - METABOLIC ACIDOSIS [None]
  - MULTI-ORGAN FAILURE [None]
  - NEPHROSCLEROSIS [None]
  - NO THERAPEUTIC RESPONSE [None]
  - PAIN IN JAW [None]
  - PULMONARY OEDEMA [None]
  - RASH ERYTHEMATOUS [None]
  - RENAL FAILURE ACUTE [None]
  - RENAL TUBULAR NECROSIS [None]
  - RESPIRATORY ALKALOSIS [None]
  - RESPIRATORY FAILURE [None]
  - SERUM SICKNESS [None]
  - SOMNOLENCE [None]
  - SPINAL OSTEOARTHRITIS [None]
  - SPLEEN DISORDER [None]
  - STAPHYLOCOCCAL INFECTION [None]
  - STOMATITIS [None]
  - URINARY TRACT INFECTION ENTEROCOCCAL [None]
  - UROSEPSIS [None]
  - VENTRICULAR TACHYCARDIA [None]
